FAERS Safety Report 21548611 (Version 1)
Quarter: 2022Q4

REPORT INFORMATION
  Report Type: Spontaneous
  Country: TW (occurrence: TW)
  Receive Date: 20221103
  Receipt Date: 20221103
  Transmission Date: 20230112
  Serious: Yes (Death, Other)
  Sender: FDA-Public Use
  Company Number: TW-ELI_LILLY_AND_COMPANY-TW202210014707

PATIENT
  Age: 40 Year
  Sex: Male

DRUGS (7)
  1. CYRAMZA [Suspect]
     Active Substance: RAMUCIRUMAB
     Indication: Hepatocellular carcinoma
     Dosage: 500 MG, UNKNOWN
     Route: 042
     Dates: start: 20210611
  2. CYRAMZA [Suspect]
     Active Substance: RAMUCIRUMAB
     Dosage: 500 MG, UNKNOWN
     Route: 042
     Dates: start: 20210625
  3. CYRAMZA [Suspect]
     Active Substance: RAMUCIRUMAB
     Dosage: 500 MG, UNKNOWN
     Route: 042
     Dates: start: 20210707
  4. CYRAMZA [Suspect]
     Active Substance: RAMUCIRUMAB
     Dosage: 500 MG, UNKNOWN
     Route: 042
     Dates: start: 20210723
  5. CYRAMZA [Suspect]
     Active Substance: RAMUCIRUMAB
     Dosage: 500 MG, UNKNOWN
     Route: 042
     Dates: start: 20210806
  6. CYRAMZA [Suspect]
     Active Substance: RAMUCIRUMAB
     Dosage: 500 MG, UNKNOWN
     Route: 042
     Dates: start: 20210903
  7. CYRAMZA [Suspect]
     Active Substance: RAMUCIRUMAB
     Dosage: 500 MG, UNKNOWN
     Route: 042
     Dates: start: 20211001

REACTIONS (5)
  - Death [Fatal]
  - Malignant neoplasm progression [Unknown]
  - Alpha 1 foetoprotein abnormal [Unknown]
  - Pleural effusion [Unknown]
  - Ascites [Unknown]

NARRATIVE: CASE EVENT DATE: 20211229
